FAERS Safety Report 7197249-4 (Version None)
Quarter: 2010Q4

REPORT INFORMATION
  Report Type: 
  Country: None (occurrence: None)
  Receive Date: 20101224
  Receipt Date: 20101213
  Transmission Date: 20110411
  Serious: Yes (Hospitalization)
  Sender: FDA-Public Use
  Company Number: JP-AMGEN-JPNCT2010011116

PATIENT

DRUGS (10)
  1. PANITUMUMAB [Suspect]
     Indication: COLORECTAL CANCER
     Dosage: 6 MG/KG, Q2WK
     Route: 041
     Dates: start: 20100914
  2. IRINOTECAN HYDROCHLORIDE [Suspect]
     Indication: COLORECTAL CANCER
     Route: 041
     Dates: start: 20100914, end: 20101012
  3. FLUOROURACIL [Suspect]
     Indication: COLORECTAL CANCER
     Route: 040
     Dates: start: 20100914, end: 20101012
  4. FLUOROURACIL [Suspect]
     Route: 041
     Dates: start: 20100914, end: 20101012
  5. CALCIUM LEVOFOLINATE [Suspect]
     Indication: COLORECTAL CANCER
     Route: 041
     Dates: start: 20100914, end: 20101012
  6. CORTICOSTEROIDS [Concomitant]
     Indication: PROPHYLAXIS
     Route: 065
  7. GRANISETRON HCL [Concomitant]
     Route: 042
  8. DECADRON PHOSPHATE [Concomitant]
     Route: 042
  9. MAXIPIME [Concomitant]
     Route: 042
  10. NEUTROGIN [Concomitant]
     Route: 042

REACTIONS (2)
  - NEUTROPHIL COUNT DECREASED [None]
  - PARONYCHIA [None]
